FAERS Safety Report 25848873 (Version 1)
Quarter: 2025Q3

REPORT INFORMATION
  Report Type: Spontaneous
  Country: CN (occurrence: CN)
  Receive Date: 20250925
  Receipt Date: 20250925
  Transmission Date: 20251020
  Serious: Yes (Death)
  Sender: AMGEN
  Company Number: CN-AMGEN-CHNSP2025186777

PATIENT

DRUGS (1)
  1. XGEVA [Suspect]
     Active Substance: DENOSUMAB
     Indication: Hypercalcaemia of malignancy
     Route: 065

REACTIONS (5)
  - Death [Fatal]
  - Drug ineffective [Fatal]
  - Hypercalcaemia of malignancy [Fatal]
  - Non-Hodgkin^s lymphoma [Fatal]
  - Therapy partial responder [Unknown]
